FAERS Safety Report 16364720 (Version 5)
Quarter: 2022Q1

REPORT INFORMATION
  Report Type: Spontaneous
  Country: NL (occurrence: NL)
  Receive Date: 20190529
  Receipt Date: 20220104
  Transmission Date: 20220424
  Serious: Yes (Other)
  Sender: FDA-Public Use
  Company Number: NL-EMA-20150826-AUTODUP-444538

PATIENT
  Age: 57 Year
  Sex: Male

DRUGS (7)
  1. IBUPROFEN [Interacting]
     Active Substance: IBUPROFEN
     Indication: Tooth extraction
     Dosage: 600 MILLIGRAM, 3 TIMES A DAY
     Route: 065
  2. IBUPROFEN [Interacting]
     Active Substance: IBUPROFEN
     Dosage: 600 MILLIGRAM, ONCE A DAY
     Route: 065
  3. IBUPROFEN [Interacting]
     Active Substance: IBUPROFEN
     Dosage: 1800 MILLIGRAM, ONCE A DAY(600 MILLIGRAM, TID )
     Route: 065
  4. TENOFOVIR DISOPROXIL [Interacting]
     Active Substance: TENOFOVIR DISOPROXIL
     Indication: HIV infection
     Dosage: 245 MILLIGRAM
     Route: 065
  5. EMTRICITABINE\RILPIVIRINE\TENOFOVIR DISOPROXIL FUMARATE [Interacting]
     Active Substance: EMTRICITABINE\RILPIVIRINE\TENOFOVIR DISOPROXIL FUMARATE
     Indication: HIV infection
     Dosage: 25/200/245 MG
     Route: 065
  6. EMTRICITABINE [Concomitant]
     Active Substance: EMTRICITABINE
     Indication: HIV infection
     Dosage: 200 MILLIGRAM
     Route: 065
  7. RILPIVIRINE [Concomitant]
     Active Substance: RILPIVIRINE
     Indication: HIV infection
     Dosage: 25 MILLIGRAM
     Route: 065

REACTIONS (9)
  - Renal injury [Recovered/Resolved]
  - Renal tubular dysfunction [Recovered/Resolved]
  - Hypophosphataemia [Recovered/Resolved]
  - Proteinuria [Recovered/Resolved]
  - Glycosuria [Recovered/Resolved]
  - Urine protein/creatinine ratio increased [Recovered/Resolved]
  - Glomerular filtration rate decreased [Recovered/Resolved]
  - Fractional excretion of phosphate [Recovered/Resolved]
  - Drug interaction [Recovered/Resolved]
